FAERS Safety Report 9272524 (Version 1)
Quarter: 2013Q2

REPORT INFORMATION
  Report Type: Spontaneous
  Country: DK (occurrence: DK)
  Receive Date: 20130506
  Receipt Date: 20130506
  Transmission Date: 20140414
  Serious: Yes (Other)
  Sender: FDA-Public Use
  Company Number: DK-GLAXOSMITHKLINE-B0792671A

PATIENT
  Age: 39 Year
  Sex: Female

DRUGS (4)
  1. TROBALT [Suspect]
     Indication: PRODUCT USED FOR UNKNOWN INDICATION
     Dosage: 200MG THREE TIMES PER DAY
     Route: 065
     Dates: start: 20111207, end: 20130405
  2. LAMOTRIGINE [Concomitant]
  3. ZEBINIX [Concomitant]
  4. NITROFURANTOIN [Concomitant]

REACTIONS (3)
  - Urinary tract infection [Unknown]
  - Urinary retention [Recovered/Resolved]
  - Weight increased [Unknown]
